FAERS Safety Report 4675083-4 (Version None)
Quarter: 2005Q2

REPORT INFORMATION
  Report Type: 
  Country: None (occurrence: None)
  Receive Date: 20050526
  Receipt Date: 20040510
  Transmission Date: 20051028
  Serious: Yes (Life-Threatening, Hospitalization, Other)
  Sender: FDA-Public Use
  Company Number: US-MERCK-0405USA00634

PATIENT
  Age: 76 Year
  Sex: Female
  Weight: 84 kg

DRUGS (10)
  1. METHOTREXATE [Suspect]
     Route: 065
     Dates: start: 20010419
  2. VIOXX [Suspect]
     Indication: PAIN
     Route: 048
     Dates: start: 19990101, end: 20010101
  3. VIOXX [Suspect]
     Indication: RHEUMATOID ARTHRITIS
     Route: 048
     Dates: start: 19990101, end: 20010101
  4. COUMADIN [Suspect]
     Route: 065
     Dates: end: 20040129
  5. LIPITOR [Suspect]
     Route: 048
     Dates: end: 20010409
  6. LIPITOR [Suspect]
     Route: 048
     Dates: start: 20010401
  7. PREDNISONE [Suspect]
     Route: 065
  8. INFLIXIMAB [Suspect]
     Route: 065
  9. PRINIVIL [Suspect]
     Route: 048
  10. METHOTREXATE [Suspect]
     Route: 048
     Dates: end: 20010409

REACTIONS (73)
  - ACQUIRED OESOPHAGEAL WEB [None]
  - ANAEMIA [None]
  - ANAEMIA VITAMIN B12 DEFICIENCY [None]
  - ANGINA PECTORIS [None]
  - ANGINA UNSTABLE [None]
  - ANXIETY [None]
  - ARTERIOVENOUS MALFORMATION [None]
  - BILE DUCT STONE [None]
  - BLOOD CULTURE POSITIVE [None]
  - CARDIAC FAILURE CONGESTIVE [None]
  - CARDIOMEGALY [None]
  - CATHETER BACTERAEMIA [None]
  - CHEST PAIN [None]
  - CHOLEDOCHAL CYST [None]
  - CHRONIC FATIGUE SYNDROME [None]
  - CHRONIC OBSTRUCTIVE PULMONARY DISEASE [None]
  - COAGULOPATHY [None]
  - CONSTIPATION [None]
  - CORONARY ARTERY DISEASE [None]
  - DEPRESSION [None]
  - DIABETES MELLITUS INADEQUATE CONTROL [None]
  - DIARRHOEA [None]
  - DIVERTICULUM [None]
  - DYSPEPSIA [None]
  - DYSPHAGIA [None]
  - DYSPNOEA [None]
  - EMOTIONAL DISTRESS [None]
  - ENDOCARDITIS BACTERIAL [None]
  - ENTEROBACTER BACTERAEMIA [None]
  - ENTEROCOCCAL BACTERAEMIA [None]
  - EPIGASTRIC DISCOMFORT [None]
  - FALL [None]
  - FEMUR FRACTURE [None]
  - FLUID RETENTION [None]
  - GASTRIC DISORDER [None]
  - GASTRIC HAEMORRHAGE [None]
  - GASTRITIS [None]
  - GASTRITIS HAEMORRHAGIC [None]
  - GASTROINTESTINAL ARTERIOVENOUS MALFORMATION [None]
  - GASTROINTESTINAL HAEMORRHAGE [None]
  - GASTROOESOPHAGEAL REFLUX DISEASE [None]
  - GLAUCOMA [None]
  - HAEMATOCHEZIA [None]
  - HEPATIC FAILURE [None]
  - HYPERCHOLESTEROLAEMIA [None]
  - HYPERKALAEMIA [None]
  - INFLUENZA LIKE ILLNESS [None]
  - IRON DEFICIENCY ANAEMIA [None]
  - ISCHAEMIC CARDIOMYOPATHY [None]
  - ISCHAEMIC HEPATITIS [None]
  - JOINT SWELLING [None]
  - MALAISE [None]
  - MENTAL STATUS CHANGES [None]
  - MYOCARDIAL INFARCTION [None]
  - NASOPHARYNGITIS [None]
  - NAUSEA [None]
  - OEDEMA PERIPHERAL [None]
  - OSTEOARTHRITIS [None]
  - PANCREATITIS [None]
  - PLEURAL EFFUSION [None]
  - PNEUMONIA [None]
  - PNEUMONITIS [None]
  - PULMONARY HYPERTENSION [None]
  - PULMONARY OEDEMA [None]
  - RENAL FAILURE ACUTE [None]
  - RESPIRATORY FAILURE [None]
  - STAPHYLOCOCCAL INFECTION [None]
  - SYNCOPE [None]
  - THROMBOTIC STROKE [None]
  - TROPONIN INCREASED [None]
  - URINARY TRACT INFECTION ENTEROCOCCAL [None]
  - VOMITING [None]
  - WEIGHT DECREASED [None]
